FAERS Safety Report 17435006 (Version 3)
Quarter: 2020Q2

REPORT INFORMATION
  Report Type: Report from Study
  Country: US (occurrence: US)
  Receive Date: 20200219
  Receipt Date: 20200506
  Transmission Date: 20200713
  Serious: Yes (Hospitalization)
  Sender: FDA-Public Use
  Company Number: NVSC2020US044882

PATIENT
  Age: 81 Year
  Sex: Female

DRUGS (2)
  1. COSENTYX [Suspect]
     Active Substance: SECUKINUMAB
     Dosage: 300 MG, QMO
     Route: 058
  2. COSENTYX [Suspect]
     Active Substance: SECUKINUMAB
     Indication: PSORIASIS
     Dosage: 300 MG, QMO
     Route: 058
     Dates: start: 20191127

REACTIONS (7)
  - Fall [Unknown]
  - Infection [Unknown]
  - Psoriasis [Unknown]
  - Hip fracture [Unknown]
  - Sinusitis [Recovered/Resolved]
  - Macule [Unknown]
  - Brain injury [Unknown]

NARRATIVE: CASE EVENT DATE: 20200427
